FAERS Safety Report 9719232 (Version 1)
Quarter: 2013Q4

REPORT INFORMATION
  Report Type: Report from Study
  Country: US (occurrence: US)
  Receive Date: 20131127
  Receipt Date: 20131127
  Transmission Date: 20140711
  Serious: Yes (Other)
  Sender: FDA-Public Use
  Company Number: PHEH2013US024524

PATIENT
  Sex: Male

DRUGS (1)
  1. AFINITOR [Suspect]
     Dosage: 5 MG, BID
     Route: 048

REACTIONS (2)
  - Gout [Unknown]
  - Renal failure [Unknown]
